FAERS Safety Report 18451853 (Version 1)
Quarter: 2020Q4

REPORT INFORMATION
  Report Type: Spontaneous
  Country: US (occurrence: US)
  Receive Date: 20201030
  Receipt Date: 20201030
  Transmission Date: 20210114
  Serious: Yes (Other)
  Sender: FDA-Public Use
  Company Number: None

PATIENT
  Age: 55 Year
  Sex: Male
  Weight: 64.8 kg

DRUGS (2)
  1. MIRALAX [Concomitant]
     Active Substance: POLYETHYLENE GLYCOL 3350
  2. CAPECITABINE. [Suspect]
     Active Substance: CAPECITABINE
     Indication: COLON CANCER
     Dosage: OTHER FREQUENCY:BID X14 DAYS, 7OFF;?
     Route: 048
     Dates: start: 20200805, end: 20201030

REACTIONS (1)
  - Disease progression [None]

NARRATIVE: CASE EVENT DATE: 20201030
